FAERS Safety Report 8583277-0 (Version None)
Quarter: 2012Q3

REPORT INFORMATION
  Report Type: 
  Country: None (occurrence: None)
  Receive Date: 20120809
  Receipt Date: 20120803
  Transmission Date: 20120928
  Serious: Yes (Other)
  Sender: FDA-Public Use
  Company Number: US-ALLERGAN-1210712US

PATIENT
  Sex: Female

DRUGS (1)
  1. BOTULINUM TOXIN TYPE A [Suspect]
     Indication: TORTICOLLIS
     Dosage: UNK, SINGLE

REACTIONS (3)
  - COUGH [None]
  - DIAPHRAGMATIC PARALYSIS [None]
  - RESPIRATORY TRACT CONGESTION [None]
